FAERS Safety Report 15316564 (Version 3)
Quarter: 2018Q3

REPORT INFORMATION
  Report Type: Report from Study
  Country: None (occurrence: US)
  Receive Date: 20180824
  Receipt Date: 20180918
  Transmission Date: 20181010
  Serious: Yes (Hospitalization)
  Sender: FDA-Public Use
  Company Number: US-ABBVIE-18K-163-2411280-00

PATIENT
  Age: 66 Year
  Sex: Male
  Weight: 94.89 kg

DRUGS (14)
  1. CYMBALTA [Suspect]
     Active Substance: DULOXETINE HYDROCHLORIDE
     Indication: PRODUCT USED FOR UNKNOWN INDICATION
     Route: 065
  2. RITUXIMAB. [Concomitant]
     Active Substance: RITUXIMAB
     Indication: PRODUCT USED FOR UNKNOWN INDICATION
     Dates: start: 201711, end: 201712
  3. ACTEMRA [Concomitant]
     Active Substance: TOCILIZUMAB
     Indication: PRODUCT USED FOR UNKNOWN INDICATION
     Dates: start: 201711, end: 201712
  4. ACTEMRA [Concomitant]
     Active Substance: TOCILIZUMAB
     Dates: end: 20180727
  5. HUMIRA [Suspect]
     Active Substance: ADALIMUMAB
     Indication: UVEITIS
     Route: 058
     Dates: start: 20180622, end: 20180830
  6. NYSTATIN. [Suspect]
     Active Substance: NYSTATIN
     Indication: CANDIDA INFECTION
     Route: 065
  7. PREDNISONE. [Concomitant]
     Active Substance: PREDNISONE
     Indication: AUTOIMMUNE DISORDER
     Dates: end: 20180727
  8. ACTEMRA [Concomitant]
     Active Substance: TOCILIZUMAB
     Dates: end: 20180727
  9. HUMIRA [Suspect]
     Active Substance: ADALIMUMAB
     Indication: ANKYLOSING SPONDYLITIS
     Route: 058
     Dates: start: 20180507, end: 20180604
  10. PREDNISONE. [Concomitant]
     Active Substance: PREDNISONE
     Dates: end: 20180727
  11. RITUXIMAB. [Concomitant]
     Active Substance: RITUXIMAB
     Dates: end: 20180727
  12. CEFUROXIME. [Suspect]
     Active Substance: CEFUROXIME
     Indication: PNEUMONIA
     Route: 065
  13. RITUXIMAB. [Concomitant]
     Active Substance: RITUXIMAB
     Dates: end: 20180727
  14. PREDNISONE. [Concomitant]
     Active Substance: PREDNISONE
     Dates: end: 20180727

REACTIONS (27)
  - Red blood cell sedimentation rate increased [Not Recovered/Not Resolved]
  - Lip erythema [Not Recovered/Not Resolved]
  - Pruritus [Not Recovered/Not Resolved]
  - Rosacea [Not Recovered/Not Resolved]
  - Candida infection [Recovered/Resolved]
  - Hypotension [Recovered/Resolved]
  - Ear infection [Recovered/Resolved]
  - Pneumonia [Recovered/Resolved]
  - Poor quality drug administered [Unknown]
  - Therapeutic response unexpected [Not Recovered/Not Resolved]
  - Sinusitis [Recovered/Resolved]
  - Liquid product physical issue [Unknown]
  - Lip swelling [Not Recovered/Not Resolved]
  - Nasopharyngitis [Not Recovered/Not Resolved]
  - Withdrawal syndrome [Recovered/Resolved]
  - Pre-existing condition improved [Not Recovered/Not Resolved]
  - Wheezing [Unknown]
  - Drug hypersensitivity [Unknown]
  - Dermatitis allergic [Recovered/Resolved]
  - Adverse drug reaction [Recovered/Resolved]
  - C-reactive protein increased [Not Recovered/Not Resolved]
  - Fatigue [Not Recovered/Not Resolved]
  - Dysgeusia [Not Recovered/Not Resolved]
  - Urticaria [Recovered/Resolved]
  - Upper respiratory tract infection [Recovering/Resolving]
  - Pleural effusion [Not Recovered/Not Resolved]
  - Oxygen saturation decreased [Recovered/Resolved]

NARRATIVE: CASE EVENT DATE: 2018
